FAERS Safety Report 9003661 (Version 1)
Quarter: 2013Q1

REPORT INFORMATION
  Report Type: Spontaneous
  Country: US (occurrence: US)
  Receive Date: 20130108
  Receipt Date: 20130108
  Transmission Date: 20140127
  Serious: No
  Sender: FDA-Public Use
  Company Number: US-GLAXOSMITHKLINE-A0956060A

PATIENT
  Age: 54 Year
  Sex: Male

DRUGS (5)
  1. LOVAZA [Suspect]
     Indication: ROUTINE HEALTH MAINTENANCE
     Dosage: 2CAP TWICE PER DAY
     Route: 048
     Dates: start: 201109
  2. PRADAXA [Concomitant]
  3. PLAVIX [Concomitant]
  4. NADOLOL [Concomitant]
  5. LISINOPRIL [Concomitant]

REACTIONS (3)
  - Dyspepsia [Unknown]
  - Throat irritation [Unknown]
  - Sensation of foreign body [Unknown]
